FAERS Safety Report 14349129 (Version 2)
Quarter: 2018Q3

REPORT INFORMATION
  Report Type: Spontaneous
  Country: US (occurrence: US)
  Receive Date: 20180104
  Receipt Date: 20180820
  Transmission Date: 20181010
  Serious: No
  Sender: FDA-Public Use
  Company Number: US-TEVA-809116ACC

PATIENT

DRUGS (1)
  1. VENLAFAXINE [Suspect]
     Active Substance: VENLAFAXINE HYDROCHLORIDE
     Route: 065

REACTIONS (10)
  - Pruritus [Unknown]
  - Dysphonia [Unknown]
  - Blood pressure increased [Unknown]
  - Chest pain [Unknown]
  - Vision blurred [Unknown]
  - Hyperhidrosis [Unknown]
  - Cough [Unknown]
  - Aphonia [Unknown]
  - Dizziness [Unknown]
  - Dyspnoea [Unknown]
